FAERS Safety Report 8948388 (Version 1)
Quarter: 2012Q4

REPORT INFORMATION
  Report Type: 
  Country: DE (occurrence: DE)
  Receive Date: 20121206
  Receipt Date: 20121206
  Transmission Date: 20130627
  Serious: Yes (Other)
  Sender: FDA-Public Use
  Company Number: PHHY2012DE111510

PATIENT
  Age: 73 Year
  Sex: Male

DRUGS (1)
  1. TASIGNA [Suspect]

REACTIONS (4)
  - Polymyalgia rheumatica [Unknown]
  - Myalgia [Unknown]
  - Oedema peripheral [Unknown]
  - C-reactive protein increased [Unknown]
